FAERS Safety Report 17711834 (Version 1)
Quarter: 2020Q2

REPORT INFORMATION
  Report Type: Spontaneous
  Country: US (occurrence: US)
  Receive Date: 20200427
  Receipt Date: 20200427
  Transmission Date: 20200714
  Serious: Yes (Other)
  Sender: FDA-Public Use
  Company Number: US-GLAXOSMITHKLINE-US2020AMR068700

PATIENT
  Sex: Female

DRUGS (2)
  1. SHINGLES VACCINE SOLUTION FOR INJECTION (RECOMBINANT VARICELLA ZOSTER VIRUS SURFACE GLYCOPROTEIN E) [Suspect]
     Active Substance: RECOMBINANT VARICELLA ZOSTER VIRUS (VZV) GLYCOPROTEIN E
     Indication: PROPHYLAXIS
  2. NUCALA [Suspect]
     Active Substance: MEPOLIZUMAB
     Indication: ASTHMA
     Dosage: 100 MG

REACTIONS (2)
  - Herpes zoster [Unknown]
  - Vaccination failure [Unknown]
